FAERS Safety Report 4946579-2 (Version None)
Quarter: 2006Q1

REPORT INFORMATION
  Report Type: 
  Country: None (occurrence: None)
  Receive Date: 20060317
  Receipt Date: 20060311
  Transmission Date: 20060701
  Serious: Yes (Other)
  Sender: FDA-Public Use
  Company Number: 2006AC00311

PATIENT
  Age: 74 Year
  Sex: Female

DRUGS (8)
  1. CEFUROXIM [Suspect]
     Route: 057
  2. LIGNOCAINE [Suspect]
     Route: 031
  3. BUPIVACAINE [Suspect]
     Dosage: 20MG PER DAY
     Route: 031
  4. HYALURONIDASE [Suspect]
     Route: 031
  5. PROXYMETACAINE [Suspect]
     Route: 031
  6. POVIDONE IODINE [Suspect]
     Indication: ENDOPHTHALMITIS
     Route: 061
  7. PREDNISOLONE [Suspect]
     Route: 065
  8. CHLORAMPHENICOL [Suspect]
     Route: 065

REACTIONS (4)
  - CONJUNCTIVAL OEDEMA [None]
  - EXOPHTHALMOS [None]
  - EYE INFLAMMATION [None]
  - INTRAOCULAR PRESSURE TEST [None]
